FAERS Safety Report 13845100 (Version 1)
Quarter: 2017Q3

REPORT INFORMATION
  Report Type: Spontaneous
  Country: US (occurrence: US)
  Receive Date: 20170808
  Receipt Date: 20170808
  Transmission Date: 20171127
  Serious: No
  Sender: FDA-Public Use
  Company Number: US-BAYER-2017-151222

PATIENT
  Age: 59 Year
  Sex: Female
  Weight: 71 kg

DRUGS (1)
  1. LOTRIMIN ULTRA ANTIFUNGAL [Suspect]
     Active Substance: BUTENAFINE HYDROCHLORIDE
     Indication: TINEA INFECTION
     Dosage: (UNK
     Route: 061
     Dates: start: 20170806, end: 20170807

REACTIONS (3)
  - Skin fissures [Unknown]
  - Skin exfoliation [Unknown]
  - Burning sensation [Unknown]
